FAERS Safety Report 18497977 (Version 1)
Quarter: 2020Q4

REPORT INFORMATION
  Report Type: Spontaneous
  Country: NL (occurrence: NL)
  Receive Date: 20201112
  Receipt Date: 20201112
  Transmission Date: 20210114
  Serious: Yes (Hospitalization)
  Sender: FDA-Public Use
  Company Number: NL-MYLANLABS-2020M1093630

PATIENT
  Age: 62 Year
  Sex: Male

DRUGS (2)
  1. SINEMET [Suspect]
     Active Substance: CARBIDOPA\LEVODOPA
     Indication: PARKINSON^S DISEASE
     Dosage: UNK
     Route: 048
     Dates: start: 2005, end: 2020
  2. CARBIDOPA/LEVODOPA [Suspect]
     Active Substance: CARBIDOPA\LEVODOPA
     Indication: PARKINSON^S DISEASE
     Dosage: UNK
     Route: 065
     Dates: start: 2020

REACTIONS (7)
  - Dizziness [Unknown]
  - Illness [Unknown]
  - Fall [Unknown]
  - Balance disorder [Unknown]
  - Product substitution issue [Unknown]
  - Adverse drug reaction [Unknown]
  - Nausea [Unknown]

NARRATIVE: CASE EVENT DATE: 2020
